FAERS Safety Report 19647470 (Version 1)
Quarter: 2021Q3

REPORT INFORMATION
  Report Type: Spontaneous
  Country: CA (occurrence: CA)
  Receive Date: 20210802
  Receipt Date: 20210802
  Transmission Date: 20211014
  Serious: Yes (Other)
  Sender: FDA-Public Use
  Company Number: CA-PFIZER INC-2021887877

PATIENT
  Age: 59 Year
  Sex: Male

DRUGS (13)
  1. INFLECTRA [Concomitant]
     Active Substance: INFLIXIMAB-DYYB
     Dosage: 400 EVERY 6 WEEKS
     Route: 042
     Dates: start: 20210604
  2. IRON [Concomitant]
     Active Substance: IRON
     Dosage: 1 DF
  3. METRONIDAZOLE. [Concomitant]
     Active Substance: METRONIDAZOLE
  4. METHOTREXATE SODIUM. [Suspect]
     Active Substance: METHOTREXATE SODIUM
     Dosage: 15 MG, WEEKLY
     Route: 048
  5. INFLECTRA [Concomitant]
     Active Substance: INFLIXIMAB-DYYB
     Dosage: 400 EVERY 6 WEEKS
     Route: 042
     Dates: start: 20201218
  6. PREDNISONE. [Concomitant]
     Active Substance: PREDNISONE
     Dosage: 40 MG
     Dates: start: 20190524
  7. AMLODIPINE [Concomitant]
     Active Substance: AMLODIPINE BESYLATE
     Dosage: 10 MG, 1X/DAY (QD)
     Route: 048
  8. VIT D [VITAMIN D NOS] [Concomitant]
     Dosage: 1 DF
  9. ATACAND [Concomitant]
     Active Substance: CANDESARTAN CILEXETIL
     Dosage: 1 DF
     Route: 048
  10. SOLU?MEDROL [Concomitant]
     Active Substance: METHYLPREDNISOLONE SODIUM SUCCINATE
     Dosage: 30 MG
  11. INFLECTRA [Concomitant]
     Active Substance: INFLIXIMAB-DYYB
     Indication: CROHN^S DISEASE
     Dosage: 400 MG EVERY 8 WEEKS
     Route: 042
     Dates: start: 20190822, end: 20201106
  12. CALCIUM [Concomitant]
     Active Substance: CALCIUM
     Dosage: 1 DF
  13. IRBESARTAN. [Concomitant]
     Active Substance: IRBESARTAN
     Dosage: 1 DF

REACTIONS (5)
  - Fatigue [Recovering/Resolving]
  - Abdominal distension [Unknown]
  - Constipation [Unknown]
  - Weight decreased [Unknown]
  - Basal cell carcinoma [Unknown]
